FAERS Safety Report 5653923-X (Version None)
Quarter: 2008Q1

REPORT INFORMATION
  Report Type: 
  Country: None (occurrence: None)
  Receive Date: 20080306
  Receipt Date: 20080229
  Transmission Date: 20080703
  Serious: Yes (Life-Threatening, Hospitalization, Other)
  Sender: FDA-Public Use
  Company Number: PHHO2006JP04300

PATIENT
  Age: 31 Year
  Sex: Female
  Weight: 36 kg

DRUGS (6)
  1. CELLCEPT [Suspect]
     Indication: RENAL TRANSPLANT
     Dosage: 2 G DAILY
     Route: 048
     Dates: start: 20050207
  2. PREDONINE [Suspect]
     Indication: RENAL TRANSPLANT
     Dosage: 40 MG DAILY
     Route: 048
     Dates: start: 20050207
  3. PROGRAF [Suspect]
     Indication: RENAL TRANSPLANT
     Dosage: 4 MG/DAY
     Route: 042
     Dates: start: 20050210
  4. NEORAL [Suspect]
     Indication: RENAL TRANSPLANT
     Dosage: 300 MG/DAY
     Route: 048
     Dates: start: 20050207
  5. SIMULECT [Suspect]
     Indication: RENAL TRANSPLANT
     Dosage: 20 MG, DAY 0
     Route: 042
     Dates: start: 20050210, end: 20050210
  6. SIMULECT [Suspect]
     Dosage: 20 MG, DAY 4
     Route: 042
     Dates: start: 20050214, end: 20050214

REACTIONS (6)
  - BLOOD CREATININE INCREASED [None]
  - HAEMATOMA INFECTION [None]
  - PLATELET COUNT DECREASED [None]
  - SURGERY [None]
  - THROMBOTIC MICROANGIOPATHY [None]
  - URETERAL NECROSIS [None]
